FAERS Safety Report 14870847 (Version 1)
Quarter: 2018Q2

REPORT INFORMATION
  Report Type: Spontaneous
  Country: US (occurrence: US)
  Receive Date: 20180424
  Receipt Date: 20180424
  Transmission Date: 20180711
  Serious: No
  Sender: FDA-Public Use
  Company Number: None

PATIENT

DRUGS (1)
  1. BETAMETHASONE VALERATE. [Suspect]
     Active Substance: BETAMETHASONE VALERATE
     Indication: SKIN DISORDER
     Route: 061
     Dates: start: 20180215, end: 20180308

REACTIONS (4)
  - Scab [None]
  - Rash [None]
  - Application site erythema [None]
  - Drug ineffective [None]

NARRATIVE: CASE EVENT DATE: 20180309
